FAERS Safety Report 14501764 (Version 1)
Quarter: 2018Q1

REPORT INFORMATION
  Report Type: Spontaneous
  Country: US (occurrence: US)
  Receive Date: 20180206
  Receipt Date: 20180206
  Transmission Date: 20180509
  Serious: Yes (Other)
  Sender: FDA-Public Use
  Company Number: None

PATIENT
  Age: 71 Year
  Sex: Male
  Weight: 90 kg

DRUGS (7)
  1. AMLODOPINE [Concomitant]
     Active Substance: AMLODIPINE BESYLATE
  2. TOBRADEX [Suspect]
     Active Substance: DEXAMETHASONE\TOBRAMYCIN
     Indication: EYE OPERATION
     Dosage: ?          QUANTITY:1 DROP(S);?
     Route: 047
     Dates: start: 20180118, end: 20180204
  3. VALSARDEN [Concomitant]
  4. METFOMIN [Concomitant]
     Active Substance: METFORMIN HYDROCHLORIDE
  5. ASPRIN [Concomitant]
     Active Substance: ASPIRIN
  6. HTZ [Concomitant]
  7. LOVASTATIN. [Concomitant]
     Active Substance: LOVASTATIN

REACTIONS (2)
  - Dizziness [None]
  - Dysstasia [None]

NARRATIVE: CASE EVENT DATE: 20180206
